FAERS Safety Report 7880346-5 (Version None)
Quarter: 2011Q4

REPORT INFORMATION
  Report Type: 
  Country: None (occurrence: None)
  Receive Date: 20111101
  Receipt Date: 20111025
  Transmission Date: 20120403
  Serious: Yes (Death)
  Sender: FDA-Public Use
  Company Number: AU-PFIZER INC-2011252598

PATIENT
  Age: 59 Year

DRUGS (5)
  1. PANTOPRAZOLE [Concomitant]
     Indication: ANTACID THERAPY
     Dosage: 40 MG, 1X/DAY
     Route: 048
  2. TORISEL [Suspect]
     Indication: RENAL CELL CARCINOMA
     Dosage: 25 MG, WEEKLY
     Route: 042
     Dates: start: 20110826, end: 20110905
  3. OXYCONTIN [Concomitant]
     Indication: PAIN
     Dosage: 20 MG, 2X/DAY
     Route: 048
  4. ZOMETA [Concomitant]
     Indication: HYPERCALCAEMIA
     Dosage: 4 MG, 3X/WEEK
     Route: 042
  5. ZOFRAN [Concomitant]
     Indication: NAUSEA
     Dosage: 5 MG, 2X/DAY AS NEEDED
     Route: 060

REACTIONS (2)
  - DISEASE PROGRESSION [None]
  - RENAL CELL CARCINOMA [None]
